FAERS Safety Report 6921768-6 (Version None)
Quarter: 2010Q3

REPORT INFORMATION
  Report Type: 
  Country: None (occurrence: None)
  Receive Date: 20100812
  Receipt Date: 20100806
  Transmission Date: 20110219
  Serious: Yes (Other)
  Sender: FDA-Public Use
  Company Number: HQWYE734203AUG04

PATIENT
  Sex: Female
  Weight: 81.72 kg

DRUGS (4)
  1. PREMPHASE 14/14 [Suspect]
     Indication: MENOPAUSAL SYMPTOMS
     Dosage: UNKNOWN
     Route: 048
     Dates: start: 19970101, end: 20000101
  2. NORETHINDRONE ACETATE [Suspect]
  3. PROVERA [Suspect]
  4. PREMARIN [Suspect]

REACTIONS (1)
  - BREAST CANCER [None]
